FAERS Safety Report 10073037 (Version 1)
Quarter: 2014Q2

REPORT INFORMATION
  Report Type: Spontaneous
  Country: FR (occurrence: FR)
  Receive Date: 20140411
  Receipt Date: 20140411
  Transmission Date: 20141212
  Serious: Yes (Other)
  Sender: FDA-Public Use
  Company Number: FR-PFIZER INC-2014096147

PATIENT
  Age: 9 Month
  Sex: Male
  Weight: 7.9 kg

DRUGS (3)
  1. DALACINE [Suspect]
     Indication: ACUTE RESPIRATORY DISTRESS SYNDROME
     Dosage: 80 MG, 3X/DAY
     Route: 042
     Dates: start: 20140208, end: 20140211
  2. ORBENINE [Concomitant]
     Indication: ACUTE RESPIRATORY DISTRESS SYNDROME
     Dosage: UNK
     Dates: start: 20140208
  3. CLAFORAN [Concomitant]
     Indication: ACUTE RESPIRATORY DISTRESS SYNDROME
     Dosage: UNK
     Dates: start: 20140208

REACTIONS (1)
  - Hepatocellular injury [Recovered/Resolved]
